FAERS Safety Report 15474147 (Version 1)
Quarter: 2018Q4

REPORT INFORMATION
  Report Type: Spontaneous
  Country: US (occurrence: US)
  Receive Date: 20181008
  Receipt Date: 20181008
  Transmission Date: 20190205
  Serious: Yes (Hospitalization, Disabling)
  Sender: FDA-Public Use
  Company Number: US-JNJFOC-20181006941

PATIENT
  Age: 60 Year
  Sex: Female

DRUGS (1)
  1. INVOKANA [Suspect]
     Active Substance: CANAGLIFLOZIN
     Indication: TYPE 2 DIABETES MELLITUS
     Route: 048
     Dates: start: 20150529, end: 20161219

REACTIONS (10)
  - Hyperkalaemia [Recovering/Resolving]
  - Acute kidney injury [Recovering/Resolving]
  - Toe amputation [Unknown]
  - Diabetic foot infection [Unknown]
  - Gangrene [Unknown]
  - Ischaemic skin ulcer [Unknown]
  - Blister [Unknown]
  - Renal tubular acidosis [Recovering/Resolving]
  - Skin ulcer [Unknown]
  - Leg amputation [Unknown]

NARRATIVE: CASE EVENT DATE: 20151123
